FAERS Safety Report 7255891-6 (Version None)
Quarter: 2011Q1

REPORT INFORMATION
  Report Type: 
  Country: None (occurrence: None)
  Receive Date: 20110129
  Receipt Date: 20100510
  Transmission Date: 20110831
  Serious: No
  Sender: FDA-Public Use
  Company Number: US-ABBOTT-10P-163-0643578-00

PATIENT
  Sex: Male
  Weight: 83.99 kg

DRUGS (3)
  1. HUMIRA [Suspect]
     Indication: PSORIASIS
     Dates: start: 20090101, end: 20100101
  2. AVEENO NATURAL SOAP [Concomitant]
     Indication: PSORIASIS
  3. DEMEREX GEL [Concomitant]
     Indication: PSORIASIS

REACTIONS (1)
  - PSORIASIS [None]
